FAERS Safety Report 8486578-X (Version None)
Quarter: 2012Q3

REPORT INFORMATION
  Report Type: 
  Country: None (occurrence: None)
  Receive Date: 20120703
  Receipt Date: 20120625
  Transmission Date: 20120928
  Serious: Yes (Hospitalization, Other)
  Sender: FDA-Public Use
  Company Number: ES-ELI_LILLY_AND_COMPANY-ES201206008041

PATIENT
  Age: 51 Year
  Sex: Male

DRUGS (2)
  1. VICTOZA [Concomitant]
     Indication: TYPE 2 DIABETES MELLITUS
     Dosage: 1.2 UG, QD
     Route: 058
     Dates: start: 20120102, end: 20120528
  2. BYETTA [Suspect]
     Indication: TYPE 2 DIABETES MELLITUS
     Dosage: 10 UG, QD
     Route: 058
     Dates: start: 20100401, end: 20120101

REACTIONS (1)
  - PANCREATIC CARCINOMA [None]
